FAERS Safety Report 7747169-9 (Version None)
Quarter: 2011Q3

REPORT INFORMATION
  Report Type: 
  Country: None (occurrence: None)
  Receive Date: 20110913
  Receipt Date: 20110905
  Transmission Date: 20111222
  Serious: Yes (Hospitalization)
  Sender: FDA-Public Use
  Company Number: DE-JNJFOC-20100200409

PATIENT
  Age: 50 Year
  Sex: Male
  Weight: 75 kg

DRUGS (4)
  1. REMICADE [Suspect]
     Indication: COLITIS ULCERATIVE
     Route: 042
     Dates: start: 20090512
  2. REMICADE [Suspect]
     Route: 042
     Dates: start: 20091203
  3. AZATHIOPRINE [Concomitant]
     Indication: COLITIS ULCERATIVE
     Route: 065
     Dates: start: 20070101
  4. MESALAMINE [Concomitant]
     Indication: COLITIS ULCERATIVE
     Route: 065
     Dates: start: 20090101

REACTIONS (1)
  - BURKITT'S LYMPHOMA STAGE IV [None]
